FAERS Safety Report 6573544-4 (Version None)
Quarter: 2010Q1

REPORT INFORMATION
  Report Type: 
  Country: None (occurrence: None)
  Receive Date: 20100208
  Receipt Date: 20100127
  Transmission Date: 20100710
  Serious: Yes (Other)
  Sender: FDA-Public Use
  Company Number: US-ROCHE-662535

PATIENT
  Sex: Male
  Weight: 63.5 kg

DRUGS (7)
  1. ACCUTANE [Suspect]
     Route: 065
     Dates: start: 19960110, end: 19960710
  2. ACCUTANE [Suspect]
     Route: 065
     Dates: start: 19970527, end: 19970627
  3. ACCUTANE [Suspect]
     Route: 065
     Dates: start: 19970927, end: 19971224
  4. ACCUTANE [Suspect]
     Route: 065
     Dates: start: 19991028, end: 19991128
  5. Z-PAK [Concomitant]
     Dates: start: 19960110
  6. ZEPHREX-LA [Concomitant]
     Indication: ILL-DEFINED DISORDER
     Dosage: AS REQUIRED
     Dates: start: 19960110
  7. IMODIUM A-D [Concomitant]

REACTIONS (7)
  - COUGH [None]
  - CROHN'S DISEASE [None]
  - EAR PAIN [None]
  - INFLAMMATORY BOWEL DISEASE [None]
  - INTESTINAL OBSTRUCTION [None]
  - PHARYNGITIS [None]
  - SUICIDAL IDEATION [None]
